FAERS Safety Report 10673489 (Version 4)
Quarter: 2015Q1

REPORT INFORMATION
  Report Type: Spontaneous
  Country: US (occurrence: US)
  Receive Date: 20141224
  Receipt Date: 20150317
  Transmission Date: 20150720
  Serious: Yes (Death)
  Sender: FDA-Public Use
  Company Number: US-ROCHE-1513574

PATIENT
  Age: 83 Year
  Sex: Male

DRUGS (10)
  1. XOLAIR [Suspect]
     Active Substance: OMALIZUMAB
     Indication: PRODUCT USED FOR UNKNOWN INDICATION
     Dosage: AT DIFFERENT SUBQ SITES 1.2 PER INJECTION
     Route: 058
  2. COZAAR [Concomitant]
     Active Substance: LOSARTAN POTASSIUM
     Route: 048
  3. COMBIGAN [Concomitant]
     Active Substance: BRIMONIDINE TARTRATE\TIMOLOL MALEATE
     Dosage: 0.2% - 0.5% INSTILL 1 DROP EVERY 12 HOURS INTO AFFECTED EYE
     Route: 047
  4. XOLAIR [Suspect]
     Active Substance: OMALIZUMAB
     Route: 058
  5. ALLEGRA [Concomitant]
     Active Substance: FEXOFENADINE HYDROCHLORIDE
     Route: 048
  6. HALFPRIN [Concomitant]
     Dosage: DELAYED RELESE
     Route: 048
  7. ATORVASTATIN [Concomitant]
     Active Substance: ATORVASTATIN
     Route: 048
  8. METOPROLOL SUCCINATE. [Concomitant]
     Active Substance: METOPROLOL SUCCINATE
     Dosage: ER 24HRS
     Route: 048
  9. CIMETIDINE [Concomitant]
     Active Substance: CIMETIDINE
     Dosage: 2 TIMES EVERY DAY IN THE MORNING AND AT BED TIME
     Route: 048
  10. TRAVATAN Z [Concomitant]
     Active Substance: TRAVOPROST
     Dosage: 0.004% INSTILL 1 DROP EVERY DAY INTO AFFECTED EYE IN THE EVENING
     Route: 047

REACTIONS (4)
  - Subdural haemorrhage [Fatal]
  - Basal ganglia haemorrhage [Fatal]
  - Intraventricular haemorrhage [Fatal]
  - Cerebral haemorrhage [Fatal]

NARRATIVE: CASE EVENT DATE: 20141212
